FAERS Safety Report 13704019 (Version 1)
Quarter: 2017Q2

REPORT INFORMATION
  Report Type: Spontaneous
  Country: RU (occurrence: RU)
  Receive Date: 20170629
  Receipt Date: 20170629
  Transmission Date: 20170830
  Serious: Yes (Hospitalization)
  Sender: FDA-Public Use
  Company Number: ALCN2017RU004076

PATIENT
  Age: 86 Year
  Sex: Female

DRUGS (4)
  1. INDAPAMIDE. [Interacting]
     Active Substance: INDAPAMIDE
     Indication: HYPERTENSION
     Dosage: 2.5 MG, QD (MORNING)
     Route: 048
     Dates: start: 20150903
  2. ACETAZOLAMIDE. [Interacting]
     Active Substance: ACETAZOLAMIDE
     Indication: INTRAOCULAR PRESSURE INCREASED
     Dosage: 125 MG, BID
     Route: 065
     Dates: start: 20150909
  3. TIMOLOL GFS [Suspect]
     Active Substance: TIMOLOL MALEATE
     Indication: OPEN ANGLE GLAUCOMA
     Dosage: 2 GTT, BID (IN BOTH THE EYES)
     Route: 047
     Dates: start: 20150903
  4. TROPICAMIDE. [Interacting]
     Active Substance: TROPICAMIDE
     Indication: PROPHYLAXIS
     Dosage: 1 GTT, BID
     Route: 047
     Dates: start: 20150909

REACTIONS (6)
  - Bradycardia [Unknown]
  - Hypotension [Unknown]
  - Fall [Unknown]
  - Hypotonia [Unknown]
  - Loss of consciousness [Unknown]
  - Dizziness [Unknown]

NARRATIVE: CASE EVENT DATE: 20150914
